FAERS Safety Report 8265410-3 (Version None)
Quarter: 2012Q2

REPORT INFORMATION
  Report Type: 
  Country: None (occurrence: None)
  Receive Date: 20120406
  Receipt Date: 20120327
  Transmission Date: 20120825
  Serious: Yes (Hospitalization, Other)
  Sender: FDA-Public Use
  Company Number: DE-PFIZER INC-2011277846

PATIENT
  Age: 55 Year
  Sex: Male
  Weight: 176 kg

DRUGS (5)
  1. DEXAMETHASONE [Concomitant]
     Indication: BRAIN OEDEMA
     Dosage: 8MG, 4MG. 0MG (DAILY DOSE AT UNKNOWN FREQUENCY)
  2. TEMSIROLIMUS [Suspect]
     Dosage: 20 MG, WEEKLY
     Route: 042
     Dates: start: 20110712
  3. CYCLOPHOSPHAMIDE [Concomitant]
     Dosage: UNK
     Dates: start: 20111103
  4. IRINOTECAN HCL [Suspect]
     Dosage: 85 MG/M2, ON DAY 1,8,15,22,29,36,43,50
     Route: 042
     Dates: start: 20110712
  5. BEVACIZUMAB [Concomitant]
     Dosage: UNK
     Dates: start: 20111103

REACTIONS (2)
  - LUNG INFILTRATION [None]
  - CHEST PAIN [None]
